FAERS Safety Report 8007773-X (Version None)
Quarter: 2011Q4

REPORT INFORMATION
  Report Type: 
  Country: None (occurrence: None)
  Receive Date: 20111222
  Receipt Date: 20111222
  Transmission Date: 20120403
  Serious: Yes (Hospitalization)
  Sender: FDA-Public Use
  Company Number: None

PATIENT
  Age: 49 Year
  Sex: Male

DRUGS (3)
  1. XANAX [Concomitant]
  2. OLANZAPINE [Concomitant]
  3. TENOFOVIR DISOPROXIL FUMARATE [Suspect]
     Indication: HIV INFECTION
     Dosage: 300MG QD PO  YEARS
     Route: 048

REACTIONS (3)
  - RENAL TUBULAR DISORDER [None]
  - RENAL FAILURE ACUTE [None]
  - ANAEMIA [None]
